FAERS Safety Report 14718007 (Version 7)
Quarter: 2020Q2

REPORT INFORMATION
  Report Type: Spontaneous
  Country: US (occurrence: US)
  Receive Date: 20180404
  Receipt Date: 20200403
  Transmission Date: 20200713
  Serious: No
  Sender: FDA-Public Use
  Company Number: US-SA-2018SA061557

PATIENT
  Age: 49 Year
  Sex: Female
  Weight: 79.4 kg

DRUGS (8)
  1. DUPIXENT [Suspect]
     Active Substance: DUPILUMAB
     Indication: ECZEMA
  2. PROAIR HFA [Concomitant]
     Active Substance: ALBUTEROL SULFATE
     Indication: ASTHMA
     Dosage: 2 DF, QD
     Route: 065
  3. MILK THISTLE [SILYBUM MARIANUM] [Concomitant]
     Active Substance: DIETARY SUPPLEMENT\HERBALS\MILK THISTLE
  4. VITAMIN C [Concomitant]
     Active Substance: ASCORBIC ACID
  5. DUPIXENT [Suspect]
     Active Substance: DUPILUMAB
     Indication: DERMATITIS ATOPIC
     Dosage: 300 MG,QOW
     Route: 058
     Dates: start: 20170920
  6. LIVER [SILYBUM MARIANUM] [Concomitant]
  7. VITAMIN D3 [Concomitant]
     Active Substance: CHOLECALCIFEROL
  8. ADVAIR HFA [Concomitant]
     Active Substance: FLUTICASONE PROPIONATE\SALMETEROL XINAFOATE
     Dosage: UNK UNK,PRN
     Route: 065

REACTIONS (19)
  - Rash erythematous [Recovered/Resolved]
  - Ocular hyperaemia [Not Recovered/Not Resolved]
  - Visual impairment [Unknown]
  - Pruritus [Unknown]
  - Dermatitis acneiform [Unknown]
  - Rash erythematous [Unknown]
  - Rash [Recovered/Resolved]
  - Rash [Unknown]
  - Dermatitis atopic [Not Recovered/Not Resolved]
  - Eye swelling [Unknown]
  - Condition aggravated [Unknown]
  - Rash [Not Recovered/Not Resolved]
  - Condition aggravated [Recovered/Resolved]
  - Blepharitis [Not Recovered/Not Resolved]
  - Oral herpes [Recovered/Resolved]
  - Dry eye [Not Recovered/Not Resolved]
  - Eye discharge [Not Recovered/Not Resolved]
  - Sensitive skin [Unknown]
  - Condition aggravated [Not Recovered/Not Resolved]

NARRATIVE: CASE EVENT DATE: 20171122
